FAERS Safety Report 9528506 (Version 1)
Quarter: 2013Q1

REPORT INFORMATION
  Report Type: Spontaneous
  Country: US (occurrence: None)
  Receive Date: 20130314
  Receipt Date: 20130314
  Transmission Date: 20140127
  Serious: Yes (Other)
  Sender: FDA-Public Use
  Company Number: 1212USA010207

PATIENT
  Age: 63 Year
  Sex: Male
  Weight: 91.2 kg

DRUGS (10)
  1. VICTRELIS (BOCEPREVIR) CAPSULE, 200MG [Suspect]
     Indication: CHRONIC HEPATITIS C
     Route: 048
     Dates: start: 20121119
  2. RIBASPHERE (RIBAVIRIN) [Suspect]
     Dates: start: 20121009
  3. PEGASYS (PEGINTERFERON ALFA-2A) [Suspect]
     Dates: start: 20121009
  4. TYLENOL (ACETAMINOPHEN) [Suspect]
  5. METOPROLOL (METOPROLOL) [Concomitant]
  6. XANAX (ALPRAZOLAM) [Concomitant]
  7. GABAPENTIN (GABAPENTIN) [Concomitant]
  8. SPIRONOLACTONE (SPIRONOLACTONE) [Concomitant]
  9. DOXAZOSIN MESYLATE (DOXAZOSIN MESYLATE) [Concomitant]
  10. ACIPHEX (RABEPRAZOLE SODIUM) [Concomitant]

REACTIONS (6)
  - Bronchitis [None]
  - Chills [None]
  - Decreased interest [None]
  - Pyrexia [None]
  - Rash generalised [None]
  - Fatigue [None]
